FAERS Safety Report 9257293 (Version 1)
Quarter: 2013Q2

REPORT INFORMATION
  Report Type: Spontaneous
  Country: US (occurrence: None)
  Receive Date: 20130424
  Receipt Date: 20130424
  Transmission Date: 20140414
  Serious: Yes (Hospitalization)
  Sender: FDA-Public Use
  Company Number: None

PATIENT
  Age: 82 Year
  Sex: Male
  Weight: 116.8 kg

DRUGS (1)
  1. ATENOLOL [Suspect]
     Route: 048
     Dates: end: 20100629

REACTIONS (3)
  - Bradycardia [None]
  - Hypotension [None]
  - Fall [None]
